FAERS Safety Report 20207659 (Version 1)
Quarter: 2021Q4

REPORT INFORMATION
  Report Type: Spontaneous
  Country: DE (occurrence: DE)
  Receive Date: 20211220
  Receipt Date: 20211220
  Transmission Date: 20220303
  Serious: Yes (Life-Threatening, Hospitalization, Disabling, Other)
  Sender: FDA-Public Use
  Company Number: DE-PFIZER INC-202101438878

PATIENT
  Age: 60 Year
  Sex: Male

DRUGS (2)
  1. CANDESARTAN [Suspect]
     Active Substance: CANDESARTAN
     Indication: Hypertension
     Dosage: 8 MILLIGRAM, QD,8 MG, 1X/DAY
     Route: 065
     Dates: start: 20210803
  2. COMIRNATY [Suspect]
     Active Substance: TOZINAMERAN
     Indication: COVID-19 immunisation
     Dosage: UNK, DOSE 2 (INITIAL PFIZER DOSE), SINGLE
     Route: 058
     Dates: start: 20210804, end: 20210804

REACTIONS (16)
  - Cerebral infarction [Recovering/Resolving]
  - Ischaemic stroke [Recovering/Resolving]
  - Atrial fibrillation [Unknown]
  - Cerebral artery stenosis [Recovering/Resolving]
  - Blood pressure increased [Unknown]
  - Bradycardia [Unknown]
  - Supraventricular extrasystoles [Unknown]
  - Haematocrit decreased [Unknown]
  - High density lipoprotein decreased [Unknown]
  - Ventricular extrasystoles [Unknown]
  - Blood glucose increased [Unknown]
  - Taste disorder [Unknown]
  - Tachycardia [Unknown]
  - Product use issue [Unknown]
  - Interchange of vaccine products [Unknown]
  - Off label use [Unknown]

NARRATIVE: CASE EVENT DATE: 20210801
